FAERS Safety Report 7643260-6 (Version None)
Quarter: 2011Q3

REPORT INFORMATION
  Report Type: 
  Country: None (occurrence: None)
  Receive Date: 20110729
  Receipt Date: 20110719
  Transmission Date: 20111222
  Serious: No
  Sender: FDA-Public Use
  Company Number: US-BIOGENIDEC-2011BI027053

PATIENT
  Age: 35 Year
  Sex: Male

DRUGS (2)
  1. TYSABRI [Suspect]
     Indication: MULTIPLE SCLEROSIS
     Route: 042
     Dates: start: 20100331
  2. TYSABRI [Suspect]
     Route: 042
     Dates: start: 20070815, end: 20081224

REACTIONS (6)
  - ABASIA [None]
  - MULTIPLE SCLEROSIS [None]
  - SNAKE BITE [None]
  - PROGRESSIVE MULTIPLE SCLEROSIS [None]
  - DISABILITY [None]
  - TREMOR [None]
